FAERS Safety Report 14456420 (Version 1)
Quarter: 2018Q1

REPORT INFORMATION
  Report Type: Report from Study
  Country: US (occurrence: US)
  Receive Date: 20180130
  Receipt Date: 20180130
  Transmission Date: 20180509
  Serious: Yes (Hospitalization)
  Sender: FDA-Public Use
  Company Number: US-ROCHE-2058924

PATIENT
  Age: 58 Year
  Sex: Male

DRUGS (5)
  1. FILGRASTIM [Concomitant]
     Active Substance: FILGRASTIM
     Route: 065
  2. ISAVUCONAZONIUM [Concomitant]
     Active Substance: ISAVUCONAZONIUM
  3. OBINUTUZUMAB. [Suspect]
     Active Substance: OBINUTUZUMAB
     Indication: CHRONIC LYMPHOCYTIC LEUKAEMIA REFRACTORY
     Dosage: DATE OF MOST RECENT DOSE OF STUDY PRIOR TO SERIOUS ADVERSE EVENT: 28/NOV/2017
     Route: 042
     Dates: start: 20161013
  4. IBRUTINIB [Suspect]
     Active Substance: IBRUTINIB
     Indication: CHRONIC LYMPHOCYTIC LEUKAEMIA REFRACTORY
     Dosage: DATE OF MOST RECENT DOSE OF STUDY PRIOR TO SERIOUS ADVERSE EVENT: 16/MAR/2017
     Route: 048
     Dates: start: 20161013
  5. SULFAMETHOXAZOLE/TRIMETHOPRIM [Concomitant]
     Active Substance: SULFAMETHOXAZOLE\TRIMETHOPRIM
     Route: 065

REACTIONS (2)
  - Headache [Unknown]
  - Nausea [Unknown]

NARRATIVE: CASE EVENT DATE: 20171120
